FAERS Safety Report 5631073-6 (Version None)
Quarter: 2008Q1

REPORT INFORMATION
  Report Type: 
  Country: None (occurrence: None)
  Receive Date: 20080219
  Receipt Date: 20080209
  Transmission Date: 20080703
  Serious: Yes (Other)
  Sender: FDA-Public Use
  Company Number: US-PFIZER INC-2008000444

PATIENT
  Sex: Female
  Weight: 62 kg

DRUGS (3)
  1. ADRIAMYCIN PFS [Suspect]
     Indication: BREAST CANCER
     Route: 042
  2. CYTOXAN [Suspect]
     Indication: BREAST CANCER
     Route: 042
  3. TAXOTERE [Suspect]
     Indication: BREAST CANCER
     Route: 042
     Dates: start: 20071204, end: 20071204

REACTIONS (2)
  - GENERALISED OEDEMA [None]
  - PAIN [None]
